FAERS Safety Report 26217720 (Version 1)
Quarter: 2025Q4

REPORT INFORMATION
  Report Type: Spontaneous
  Country: GB (occurrence: GB)
  Receive Date: 20251231
  Receipt Date: 20251231
  Transmission Date: 20260117
  Serious: Yes (Hospitalization)
  Sender: STRIDES
  Company Number: None

PATIENT
  Age: 58 Year
  Sex: Male

DRUGS (6)
  1. FUROSEMIDE [Interacting]
     Active Substance: FUROSEMIDE
     Indication: Ascites
     Dosage: 20 MILLIGRAM, QD
     Route: 065
     Dates: start: 2023
  2. SPIRONOLACTONE [Interacting]
     Active Substance: SPIRONOLACTONE
     Indication: Ascites
     Dosage: 100 MILLIGRAM, QD
     Route: 065
     Dates: start: 2023, end: 2023
  3. LACTULOSE [Interacting]
     Active Substance: LACTULOSE
     Indication: Hepatic encephalopathy prophylaxis
     Dosage: UNK
     Route: 065
     Dates: start: 2023
  4. CARVEDILOL [Interacting]
     Active Substance: CARVEDILOL
     Indication: Gastrooesophageal variceal haemorrhage prophylaxis
     Dosage: 3.125MG
     Route: 065
     Dates: start: 2023
  5. CIPROFLOXACIN [Interacting]
     Active Substance: CIPROFLOXACIN
     Indication: Prophylaxis
     Dosage: LONG-TERM
     Route: 065
     Dates: start: 2023
  6. THIAMINE [Concomitant]
     Active Substance: THIAMINE
     Indication: Prophylaxis
     Dosage: UNK
     Route: 065
     Dates: start: 2023

REACTIONS (3)
  - Adrenal insufficiency [Unknown]
  - Drug interaction [Unknown]
  - Off label use [Unknown]

NARRATIVE: CASE EVENT DATE: 20230101
